FAERS Safety Report 5945442-8 (Version None)
Quarter: 2008Q4

REPORT INFORMATION
  Report Type: 
  Country: None (occurrence: None)
  Receive Date: 20081107
  Receipt Date: 20081030
  Transmission Date: 20090506
  Serious: Yes (Other)
  Sender: FDA-Public Use
  Company Number: JP-ALLERGAN-0814030US

PATIENT
  Sex: Male
  Weight: 73 kg

DRUGS (7)
  1. ALESION TABLET [Suspect]
     Indication: RHINITIS ALLERGIC
     Dosage: 20 MG, UNK
     Route: 048
     Dates: start: 20080529, end: 20080530
  2. THEOLONG [Concomitant]
     Dosage: 400 MG, UNK
     Route: 048
  3. HOKUNALIN [Concomitant]
     Dosage: 2 MG, UNK
     Route: 062
  4. MICARDIS [Concomitant]
     Indication: HYPERTENSION
     Route: 048
  5. TOWARAT-CR [Concomitant]
     Indication: HYPERTENSION
     Route: 048
  6. FLUTIDE [Concomitant]
     Route: 055
  7. EPHEDRA TEAS [Concomitant]
     Route: 048

REACTIONS (2)
  - ASTHENIA [None]
  - PALPITATIONS [None]
